FAERS Safety Report 5499449-8 (Version None)
Quarter: 2007Q4

REPORT INFORMATION
  Report Type: 
  Country: None (occurrence: None)
  Receive Date: 20071026
  Receipt Date: 20071017
  Transmission Date: 20080405
  Serious: Yes (Hospitalization)
  Sender: FDA-Public Use
  Company Number: FR-WYE-H00706707

PATIENT
  Sex: Female

DRUGS (21)
  1. INIPOMP [Suspect]
     Route: 048
     Dates: end: 20070702
  2. APROVEL [Suspect]
     Indication: ESSENTIAL HYPERTENSION
     Route: 048
  3. VASTAREL [Suspect]
     Indication: CARDIAC DISORDER
     Route: 048
     Dates: end: 20070702
  4. DI-ANTALVIC [Suspect]
     Dosage: 'DF^
     Route: 048
     Dates: end: 20070702
  5. LANSOYL [Suspect]
     Indication: CONSTIPATION
     Dosage: ^DF^
     Route: 048
     Dates: end: 20070702
  6. MONURIL [Suspect]
     Dosage: 3 G FREQUENCY UNSPECIFIED
     Route: 048
     Dates: end: 20070702
  7. DURAGESIC-100 [Suspect]
     Dosage: 25 UG 3/DAY
     Route: 062
     Dates: start: 20070618, end: 20070629
  8. BACTRIM DS [Suspect]
     Route: 048
     Dates: start: 20070604, end: 20070620
  9. MEDIATENSYL [Concomitant]
     Indication: ESSENTIAL HYPERTENSION
     Dosage: UNKNOWN
  10. DOMPERIDONE [Concomitant]
     Dosage: UNKNOWN
  11. IPERTEN [Concomitant]
     Indication: ESSENTIAL HYPERTENSION
     Dosage: UNKNOWN
  12. NEBIVOLOL [Concomitant]
     Indication: ESSENTIAL HYPERTENSION
     Dosage: UNKNOWN
  13. LASIX [Concomitant]
     Indication: CARDIAC DISORDER
     Dosage: UNKNOWN
  14. NITROGLYCERIN [Concomitant]
     Indication: CARDIAC DISORDER
     Dosage: ^DF^
     Route: 062
  15. PLAVIX [Concomitant]
     Indication: PROPHYLAXIS
     Dosage: UNKNOWN
  16. VOLTAREN [Concomitant]
     Dosage: ^DF^
     Route: 061
  17. LIPANTHYL ^FOURNIER^ [Concomitant]
  18. ACARBOSE [Concomitant]
     Dosage: UNKNOWN
  19. FLECTOR [Concomitant]
     Dosage: ^DF^
     Route: 062
  20. DAFALGAN CODEINE [Concomitant]
     Dosage: UNKNOWN
  21. PRETERAX [Suspect]
     Indication: ESSENTIAL HYPERTENSION
     Route: 048
     Dates: end: 20070702

REACTIONS (2)
  - BUNDLE BRANCH BLOCK LEFT [None]
  - RENAL FAILURE [None]
